FAERS Safety Report 4511372-1 (Version None)
Quarter: 2004Q4

REPORT INFORMATION
  Report Type: 
  Country: None (occurrence: None)
  Receive Date: 20041122
  Receipt Date: 20041108
  Transmission Date: 20050328
  Serious: Yes (Hospitalization, Other)
  Sender: FDA-Public Use
  Company Number: 2004079148

PATIENT
  Age: 65 Year
  Sex: Male
  Weight: 62 kg

DRUGS (15)
  1. ATARAX [Suspect]
     Indication: ANGIOPATHY
     Dosage: 25 MG (25 MG, 1 IN 1 D),   (IV/IM)
     Route: 042
     Dates: start: 20040203, end: 20040203
  2. DROPERIDOL [Suspect]
     Indication: ANGIOPATHY
     Dosage: 5 MG (5 MG, 1 IN 1 D), INTRAVENOUS
     Route: 042
     Dates: start: 20040203
  3. THIOPENTAL (THIPENTAL) [Suspect]
     Indication: ANAESTHESIA
     Dosage: EPIDURAL
     Route: 008
     Dates: start: 20040203, end: 20040203
  4. VECURONIUM (VECURONIUM) [Suspect]
     Indication: ANAESTHESIA
     Dosage: EPIDURAL
     Route: 008
     Dates: start: 20040203, end: 20040203
  5. SEVOFLURANE [Concomitant]
  6. ATROPINE [Concomitant]
  7. LIDOCAINE [Concomitant]
  8. MORPHINE SULFATE [Concomitant]
  9. EPHEDRINE HYDROCHLORIDE (EPHEDRINE HYDROCHLORIDE) [Concomitant]
  10. FENTANYL [Concomitant]
  11. NEOSTIGMINE (NEOSTIGMINE) [Concomitant]
  12. ROPIVACAINE (ROPIVACAINE) [Concomitant]
  13. DOPAMINE (DOPAMINE) [Concomitant]
  14. DINOPROST (DINOPROST) [Concomitant]
  15. CALCIUM CHLORIDE            (CALCIUM CHLORIDE ANHYDROUS) [Concomitant]

REACTIONS (5)
  - ACIDOSIS [None]
  - HEART RATE INCREASED [None]
  - HYPERTENSION [None]
  - PYREXIA [None]
  - SEDATION [None]
